FAERS Safety Report 19650390 (Version 3)
Quarter: 2021Q3

REPORT INFORMATION
  Report Type: Report from Study
  Country: US (occurrence: US)
  Receive Date: 20210803
  Receipt Date: 20210903
  Transmission Date: 20211014
  Serious: Yes (Life-Threatening, Hospitalization, Other)
  Sender: FDA-Public Use
  Company Number: US-TG THERAPEUTICS INC.-TGT002058

PATIENT
  Age: 76 Year
  Sex: Female
  Weight: 76.37 kg

DRUGS (19)
  1. MONTELUKAST [Concomitant]
     Active Substance: MONTELUKAST SODIUM
     Indication: PROPHYLAXIS
     Dosage: 10 MILLIGRAM, PRN
     Route: 048
     Dates: start: 20210615
  2. UBLITUXIMAB [Suspect]
     Active Substance: UBLITUXIMAB
     Indication: CHRONIC LYMPHOCYTIC LEUKAEMIA
     Dosage: 900 MILLIGRAM Q 28 DAYS
     Route: 042
     Dates: start: 20210616, end: 20210714
  3. DIPHENHYDRAMINE. [Concomitant]
     Active Substance: DIPHENHYDRAMINE
     Indication: PROPHYLAXIS
     Dosage: 50 MILLIGRAM CYCLE 1 DAY 1, 2, 8, 15 THEN EVERY CYCLE DAY 1
     Route: 042
     Dates: start: 20210616
  4. GLYCERIN SUPPOSITORIES [Concomitant]
     Indication: CONSTIPATION
     Dosage: 2 GRAM, PRN
     Route: 054
     Dates: start: 20210718
  5. VITAMINS NOS [Concomitant]
     Active Substance: VITAMINS
     Indication: NUTRITIONAL SUPPLEMENTATION
     Dosage: 1 TABLET, QD
     Route: 048
     Dates: start: 2018
  6. ACETAMINOPHEN. [Concomitant]
     Active Substance: ACETAMINOPHEN
     Indication: MUSCULOSKELETAL PAIN
     Dosage: 500 MILLIGRAM, PRN
     Route: 048
     Dates: start: 20210618
  7. DICLOFENAC SODIUM. [Concomitant]
     Active Substance: DICLOFENAC SODIUM
     Dosage: 1 PERCENT, PRN
     Route: 061
     Dates: start: 20210726
  8. UMBRALISIB [Suspect]
     Active Substance: UMBRALISIB
     Indication: CHRONIC LYMPHOCYTIC LEUKAEMIA
     Dosage: 800 MILLIGRAM, QD
     Route: 048
     Dates: start: 20210616, end: 20210713
  9. AMLODIPINE [Concomitant]
     Active Substance: AMLODIPINE BESYLATE
     Indication: HYPERTENSION
     Dosage: 10 MILLIGRAM, QD
     Route: 048
     Dates: start: 2014
  10. GLUCOSAMIN + CHONDROITIN [Concomitant]
     Indication: NUTRITIONAL SUPPLEMENTATION
     Dosage: 250/200 MILLIGRAM, QD
     Route: 048
     Dates: start: 2020
  11. COMPAZINE [Concomitant]
     Active Substance: PROCHLORPERAZINE MALEATE
     Indication: NAUSEA
     Dosage: 10 MILLIGRAM, PRN
     Route: 048
     Dates: start: 20210604
  12. ACYCLOVIR [ACICLOVIR] [Concomitant]
     Active Substance: ACYCLOVIR
     Indication: ANTIVIRAL PROPHYLAXIS
     Dosage: 400 MILLIGRAM, BID
     Dates: start: 20210615
  13. RASBURICASE [Concomitant]
     Active Substance: RASBURICASE
     Indication: PROPHYLAXIS
     Dosage: 4.5 MILLIGRAM CYCLE 1 DAY 1 AND DAY 2
     Route: 042
     Dates: start: 20210616, end: 20210617
  14. CALCIUM CARBONATE. [Concomitant]
     Active Substance: CALCIUM CARBONATE
     Dosage: 500 MILLIGRAM, PRN
     Route: 048
     Dates: start: 20210618
  15. DEXAMETHASONE. [Concomitant]
     Active Substance: DEXAMETHASONE
     Indication: PROPHYLAXIS
     Dosage: 10 MILLIGRAM CYCLE 1 DAY 1, 2, 8, 15 THEN EVERY CYCLE DAY 1
     Route: 042
     Dates: start: 20210616
  16. ALPRAZOLAM. [Concomitant]
     Active Substance: ALPRAZOLAM
     Indication: ANXIETY
     Dosage: 0.25 MILLIGRAM, PRN
     Route: 048
     Dates: start: 20201021
  17. VALSARTAN/HYDROCHLOROTHIAZIDE [Concomitant]
     Active Substance: HYDROCHLOROTHIAZIDE\VALSARTAN
     Indication: HYPERTENSION
     Dosage: 160/12.5 MILLIGRAM, QD
     Route: 048
     Dates: start: 2014
  18. HYDRALAZINE [Concomitant]
     Active Substance: HYDRALAZINE HYDROCHLORIDE
     Indication: HYPERTENSION
     Dosage: 10 MILLIGRAM, QD
     Route: 048
     Dates: start: 2014
  19. BACTRIM [Concomitant]
     Active Substance: SULFAMETHOXAZOLE\TRIMETHOPRIM
     Indication: ANTIFUNGAL PROPHYLAXIS
     Dosage: 800 MILLIGRAM, QD
     Route: 048
     Dates: start: 20210615

REACTIONS (2)
  - Intestinal adenocarcinoma [Not Recovered/Not Resolved]
  - Biliary obstruction [Not Recovered/Not Resolved]

NARRATIVE: CASE EVENT DATE: 20210726
